FAERS Safety Report 22140477 (Version 1)
Quarter: 2023Q1

REPORT INFORMATION
  Report Type: Spontaneous
  Country: AR (occurrence: AR)
  Receive Date: 20230327
  Receipt Date: 20230327
  Transmission Date: 20230418
  Serious: No
  Sender: FDA-Public Use
  Company Number: AR-PFIZER INC-PV202300048228

PATIENT
  Age: 8 Year
  Sex: Male

DRUGS (1)
  1. GENOTROPIN [Suspect]
     Active Substance: SOMATROPIN
     Indication: Foetal growth restriction
     Dosage: 0.6 TO 1 MG, 6 TIMES PER WEEK
     Dates: start: 20221230

REACTIONS (5)
  - Poor quality product administered [Recovered/Resolved]
  - Product physical consistency issue [Recovered/Resolved]
  - Injection site pruritus [Unknown]
  - Arthropod bite [Unknown]
  - Blister [Unknown]

NARRATIVE: CASE EVENT DATE: 20230312
